FAERS Safety Report 4637498-X (Version None)
Quarter: 2005Q2

REPORT INFORMATION
  Report Type: 
  Country: None (occurrence: None)
  Receive Date: 20050328
  Receipt Date: 20041208
  Transmission Date: 20051028
  Serious: No
  Sender: FDA-Public Use
  Company Number: USA030433401

PATIENT
  Age: 59 Year
  Sex: Female

DRUGS (1)
  1. STRATTERA [Suspect]
     Indication: DISTURBANCE IN ATTENTION
     Dosage: 40 MG

REACTIONS (3)
  - BLOOD PRESSURE INCREASED [None]
  - EMOTIONAL DISTRESS [None]
  - FATIGUE [None]
